FAERS Safety Report 6270875-2 (Version None)
Quarter: 2009Q3

REPORT INFORMATION
  Report Type: 
  Country: None (occurrence: None)
  Receive Date: 20090715
  Receipt Date: 20090630
  Transmission Date: 20100115
  Serious: Yes (Other)
  Sender: FDA-Public Use
  Company Number: US-JNJFOC-20080201366

PATIENT
  Age: 75 Year
  Sex: Male
  Weight: 68.4932 kg

DRUGS (15)
  1. DACOGEN [Suspect]
     Indication: MYELODYSPLASTIC SYNDROME
     Dosage: 20 MG/M2, IN 28DAY, INTRAVENOUS
     Route: 042
  2. PREDNISONE (PREDNISONE) UNSPECIFIED [Concomitant]
  3. CLINDAMYCIN (CLINDAMYCIN) OINTMENT [Concomitant]
  4. HYDROCORTISONE (HYDROCORTISONE) OINTMENT [Concomitant]
  5. ATARAX [Concomitant]
  6. HALOBETASOL (ULOBETASOL PROPIONATE) UNSPECIFIED [Concomitant]
  7. COREG (CARVEDILOL) UNSPECIFIED [Concomitant]
  8. COENZYME Q (UBIDECARENONE) UNSPECIFIED [Concomitant]
  9. AVAPRO (IRBESARTAN) UNSPECIFIED [Concomitant]
  10. PRILOSEC (OMEPRAZOLE) UNSPECIFIED [Concomitant]
  11. INDOMETHACIN (INDOMETACIN) UNSPECIFIED [Concomitant]
  12. BENADRYL (DIPHENHYDRAMINE HYDROCHLORIDE) UNSPECIFIED [Concomitant]
  13. VITAMIN C (ASCORBIC ACID) UNSPECIFIED [Concomitant]
  14. VITAMIN C (ASCORBIC ACID) UNSPECIFIED [Concomitant]
  15. ASA (ACETYLSALICYLIC ACID) UNSPECIFIED [Concomitant]

REACTIONS (10)
  - ABDOMINAL PAIN UPPER [None]
  - ACUTE FEBRILE NEUTROPHILIC DERMATOSIS [None]
  - BLOOD PRESSURE SYSTOLIC INCREASED [None]
  - HERPES ZOSTER [None]
  - MUSCULOSKELETAL PAIN [None]
  - PRURITUS [None]
  - RENAL FAILURE [None]
  - SPLENIC INFARCTION [None]
  - SPLENOMEGALY [None]
  - THROMBOCYTOPENIA [None]
